FAERS Safety Report 7524139-7 (Version None)
Quarter: 2011Q2

REPORT INFORMATION
  Report Type: 
  Country: None (occurrence: None)
  Receive Date: 20110606
  Receipt Date: 20110531
  Transmission Date: 20111010
  Serious: No
  Sender: FDA-Public Use
  Company Number: US-BIOGENIDEC-2010BI014696

PATIENT
  Sex: Female

DRUGS (2)
  1. TYSABRI [Suspect]
     Indication: MULTIPLE SCLEROSIS
     Route: 042
     Dates: start: 20091014
  2. BENADRYL [Concomitant]
     Indication: PREMEDICATION

REACTIONS (7)
  - INSOMNIA [None]
  - BACK PAIN [None]
  - WEIGHT INCREASED [None]
  - OEDEMA PERIPHERAL [None]
  - BLOOD SODIUM INCREASED [None]
  - NASOPHARYNGITIS [None]
  - HEADACHE [None]
